FAERS Safety Report 9748226 (Version 2)
Quarter: 2013Q4

REPORT INFORMATION
  Report Type: Report from Study
  Country: US (occurrence: US)
  Receive Date: 20131212
  Receipt Date: 20131212
  Transmission Date: 20140711
  Serious: Yes (Death, Hospitalization)
  Sender: FDA-Public Use
  Company Number: US-ROCHE-1261418

PATIENT
  Age: 49 Year
  Sex: Male

DRUGS (1)
  1. XELODA [Suspect]
     Indication: OESOPHAGEAL CARCINOMA
     Route: 065

REACTIONS (2)
  - Death [Fatal]
  - Malaise [Unknown]
